FAERS Safety Report 25080648 (Version 2)
Quarter: 2025Q4

REPORT INFORMATION
  Report Type: Spontaneous
  Country: US (occurrence: US)
  Receive Date: 20250315
  Receipt Date: 20251120
  Transmission Date: 20260117
  Serious: No
  Sender: ABBVIE
  Company Number: US-ABBVIE-6171481

PATIENT
  Sex: Female

DRUGS (4)
  1. VIIBRYD [Suspect]
     Active Substance: VILAZODONE HYDROCHLORIDE
     Indication: Anxiety
     Route: 048
     Dates: start: 202412, end: 202504
  2. VIIBRYD [Suspect]
     Active Substance: VILAZODONE HYDROCHLORIDE
     Indication: Anxiety
     Dosage: FORM STRENGTH: 20 MILLIGRAM
     Route: 048
  3. VIIBRYD [Suspect]
     Active Substance: VILAZODONE HYDROCHLORIDE
     Indication: Anxiety
     Dosage: FORM STRENGTH: 10 MILLIGRAM
     Route: 048
  4. VIIBRYD [Suspect]
     Active Substance: VILAZODONE HYDROCHLORIDE
     Indication: Anxiety
     Dosage: FORM STRENGTH: 10 MILLIGRAM
     Route: 048

REACTIONS (24)
  - Back pain [Not Recovered/Not Resolved]
  - Paraesthesia [Unknown]
  - Uterine contractions abnormal [Not Recovered/Not Resolved]
  - Urinary tract infection [Not Recovered/Not Resolved]
  - Fungal infection [Not Recovered/Not Resolved]
  - Abdominal distension [Not Recovered/Not Resolved]
  - Joint swelling [Unknown]
  - Emotional disorder [Unknown]
  - Anal incontinence [Unknown]
  - Insomnia [Unknown]
  - Arthralgia [Unknown]
  - Sensory disturbance [Unknown]
  - Myalgia [Unknown]
  - Fear [Unknown]
  - Hypersexuality [Unknown]
  - Uterine pain [Unknown]
  - Abdominal pain [Unknown]
  - Vulvovaginal pruritus [Unknown]
  - Vulvovaginal burning sensation [Unknown]
  - Visual impairment [Unknown]
  - Neuralgia [Unknown]
  - Pain in extremity [Unknown]
  - Oedema [Unknown]
  - Dysgeusia [Unknown]
